FAERS Safety Report 14205716 (Version 1)
Quarter: 2017Q4

REPORT INFORMATION
  Report Type: Spontaneous
  Country: US (occurrence: None)
  Receive Date: 20171120
  Receipt Date: 20171120
  Transmission Date: 20180321
  Serious: No
  Sender: FDA-Public Use
  Company Number: None

PATIENT
  Age: 82 Year
  Sex: Male
  Weight: 102.06 kg

DRUGS (2)
  1. IBUPROFEN TABLETS 200MG [Suspect]
     Active Substance: IBUPROFEN
     Indication: PAIN
     Route: 048
  2. IBUPROFEN TABLETS 200MG [Suspect]
     Active Substance: IBUPROFEN
     Indication: ARTHRITIS
     Route: 048

REACTIONS (1)
  - Product use complaint [None]

NARRATIVE: CASE EVENT DATE: 20171106
